FAERS Safety Report 23976701 (Version 1)
Quarter: 2024Q2

REPORT INFORMATION
  Report Type: Report from Study
  Country: US (occurrence: US)
  Receive Date: 20240614
  Receipt Date: 20240614
  Transmission Date: 20240716
  Serious: Yes (Hospitalization, Other)
  Sender: FDA-Public Use
  Company Number: US-ABBVIE-5754170

PATIENT
  Sex: Female

DRUGS (1)
  1. HUMIRA [Suspect]
     Active Substance: ADALIMUMAB
     Indication: Rheumatoid arthritis
     Dosage: FORM STRENGTH: 40 MILLIGRAM CITRATE FREE
     Route: 058
     Dates: start: 200906

REACTIONS (12)
  - Hospitalisation [Unknown]
  - Gait inability [Unknown]
  - Confusional state [Unknown]
  - Osteoporosis [Unknown]
  - Fibromyalgia [Unknown]
  - Foot fracture [Unknown]
  - Rheumatoid arthritis [Unknown]
  - Haemorrhage [Not Recovered/Not Resolved]
  - Pain [Not Recovered/Not Resolved]
  - Cystitis [Not Recovered/Not Resolved]
  - Thrombosis [Not Recovered/Not Resolved]
  - Swelling [Not Recovered/Not Resolved]
